FAERS Safety Report 14007277 (Version 10)
Quarter: 2018Q2

REPORT INFORMATION
  Report Type: Report from Study
  Country: JP (occurrence: JP)
  Receive Date: 20170925
  Receipt Date: 20180427
  Transmission Date: 20180711
  Serious: Yes (Hospitalization)
  Sender: FDA-Public Use
  Company Number: JP-ROCHE-1995318

PATIENT
  Age: 40 Year
  Sex: Female
  Weight: 64.1 kg

DRUGS (19)
  1. LIXIANA [Concomitant]
     Active Substance: EDOXABAN TOSYLATE
     Indication: DEEP VEIN THROMBOSIS
     Route: 048
     Dates: start: 20170801
  2. BIOFERMIN R [Concomitant]
     Active Substance: BACILLUS SUBTILIS\LACTOBACILLUS ACIDOPHILUS\STREPTOCOCCUS FAECAIS
     Indication: ENTERITIS
     Route: 048
     Dates: start: 20170803
  3. MAGNESIUM OXIDE. [Concomitant]
     Active Substance: MAGNESIUM OXIDE
     Indication: CONSTIPATION
     Route: 048
     Dates: start: 20170727
  4. EDOXABAN TOSILATE [Concomitant]
     Active Substance: EDOXABAN TOSYLATE
     Route: 065
  5. LOXONIN [Concomitant]
     Active Substance: LOXOPROFEN SODIUM
     Indication: HEADACHE
     Route: 048
  6. DECADRON [Concomitant]
     Active Substance: DEXAMETHASONE
     Indication: PREMEDICATION
     Route: 042
     Dates: start: 20170904, end: 20170904
  7. DAIKENCHUTO [Concomitant]
     Active Substance: HERBALS
     Indication: CONSTIPATION
     Route: 048
     Dates: start: 20170727
  8. CARBOPLATIN. [Suspect]
     Active Substance: CARBOPLATIN
     Indication: OVARIAN CANCER
     Dosage: MOST RECENT DOSE PRIOR TO SERIOUS ADVERSE EVENT ON 04/SEP/2017
     Route: 042
     Dates: start: 20170904
  9. LIXIANA [Concomitant]
     Active Substance: EDOXABAN TOSYLATE
     Indication: PULMONARY EMBOLISM
  10. SP TROCHES [Concomitant]
     Active Substance: DEQUALINIUM CHLORIDE
     Indication: OROPHARYNGEAL PAIN
     Route: 050
     Dates: start: 20170916, end: 20180116
  11. ZANTAC [Concomitant]
     Active Substance: RANITIDINE HYDROCHLORIDE
     Indication: PREMEDICATION
     Route: 065
     Dates: start: 20170904, end: 20170904
  12. NEORESTAR [Concomitant]
     Indication: PREMEDICATION
     Route: 065
     Dates: start: 20170904, end: 20170904
  13. PACLITAXEL. [Suspect]
     Active Substance: PACLITAXEL
     Indication: OVARIAN CANCER
     Dosage: MOST RECENT DOSE PRIOR TO SERIOUS ADVERSE EVENT ON 04/SEP/2017
     Route: 042
     Dates: start: 20170904
  14. AZUNOL [Concomitant]
     Active Substance: SODIUM GUALENATE
     Indication: OROPHARYNGEAL PAIN
     Dosage: AZUNOL GARGLE
     Route: 065
     Dates: start: 20170918, end: 20180116
  15. ATEZOLIZUMAB. [Suspect]
     Active Substance: ATEZOLIZUMAB
     Indication: OVARIAN CANCER
     Dosage: MOST RECENT DOSE PRIOR TO SERIOUS ADVERSE EVENT ON 04/SEP/2017
     Route: 042
     Dates: start: 20170904
  16. S-ADENOSYLMETHIONINE [Concomitant]
     Dosage: LIVER FUNCTION
     Route: 065
     Dates: start: 20170914, end: 20180228
  17. CANEPHRON N [Concomitant]
     Dosage: RENAL FUNCTION
     Route: 065
     Dates: start: 20170914, end: 20180228
  18. AFOBAZOLE [Concomitant]
     Dosage: IRRITATED
     Route: 065
     Dates: start: 20170922
  19. ALOXI [Concomitant]
     Active Substance: PALONOSETRON HYDROCHLORIDE
     Indication: PREMEDICATION
     Route: 065
     Dates: start: 20170904, end: 20170904

REACTIONS (2)
  - Pyrexia [Recovered/Resolved]
  - Stomatitis [Recovered/Resolved]

NARRATIVE: CASE EVENT DATE: 20170914
